FAERS Safety Report 9882959 (Version 1)
Quarter: 2014Q1

REPORT INFORMATION
  Report Type: Spontaneous
  Country: US (occurrence: None)
  Receive Date: 20140205
  Receipt Date: 20140205
  Transmission Date: 20141002
  Serious: Yes (Hospitalization)
  Sender: FDA-Public Use
  Company Number: ZYD-14-AE-021

PATIENT
  Age: 45 Year
  Sex: Female

DRUGS (1)
  1. LEVOFLOXACIN 500 MG [Suspect]
     Indication: ABDOMINAL PAIN UPPER
     Route: 048
     Dates: start: 20140110, end: 20140111

REACTIONS (4)
  - Panic attack [None]
  - Tremor [None]
  - Hallucination [None]
  - Vomiting [None]
